FAERS Safety Report 6316312-0 (Version None)
Quarter: 2009Q3

REPORT INFORMATION
  Report Type: 
  Country: None (occurrence: None)
  Receive Date: 20090820
  Receipt Date: 20090811
  Transmission Date: 20100115
  Serious: Yes (Death, Hospitalization)
  Sender: FDA-Public Use
  Company Number: A0787762A

PATIENT
  Age: 46 Year
  Sex: Male

DRUGS (1)
  1. AVANDIA [Suspect]
     Dosage: 2MG PER DAY
     Route: 065
     Dates: start: 20000401, end: 20030901

REACTIONS (3)
  - CARDIAC ARREST [None]
  - DEATH [None]
  - MYOCARDIAL ISCHAEMIA [None]
